FAERS Safety Report 6381959-2 (Version None)
Quarter: 2009Q3

REPORT INFORMATION
  Report Type: 
  Country: None (occurrence: None)
  Receive Date: 20090930
  Receipt Date: 20090921
  Transmission Date: 20100115
  Serious: Yes (Hospitalization)
  Sender: FDA-Public Use
  Company Number: US-ROCHE-657839

PATIENT
  Age: 67 Year
  Sex: Female

DRUGS (4)
  1. BONIVA [Suspect]
     Indication: OSTEOPOROSIS
     Route: 042
     Dates: start: 20090521
  2. CALCIUM [Concomitant]
  3. VITAMINE D [Concomitant]
     Dosage: TDD: 3000 IU
  4. FLAXSEED [Concomitant]

REACTIONS (2)
  - BONE PAIN [None]
  - CHOLELITHIASIS [None]
